FAERS Safety Report 6735101-6 (Version None)
Quarter: 2010Q2

REPORT INFORMATION
  Report Type: 
  Country: None (occurrence: None)
  Receive Date: 20100521
  Receipt Date: 20100512
  Transmission Date: 20101027
  Serious: Yes (Hospitalization)
  Sender: FDA-Public Use
  Company Number: US-JNJFOC-20100506136

PATIENT
  Sex: Male
  Weight: 141.52 kg

DRUGS (4)
  1. RISPERDAL CONSTA [Suspect]
     Indication: SCHIZOPHRENIA
     Route: 030
  2. RISPERDAL CONSTA [Suspect]
     Route: 030
  3. TRAZODONE HCL [Concomitant]
     Route: 065
  4. ATIVAN [Concomitant]
     Route: 065

REACTIONS (10)
  - DRUG HYPERSENSITIVITY [None]
  - ERECTILE DYSFUNCTION [None]
  - GASTRIC DILATATION [None]
  - HEPATITIS [None]
  - HYPERAESTHESIA [None]
  - INCORRECT DOSE ADMINISTERED [None]
  - LIBIDO DECREASED [None]
  - RASH [None]
  - SOMNOLENCE [None]
  - WEIGHT INCREASED [None]
